FAERS Safety Report 15189361 (Version 1)
Quarter: 2018Q3

REPORT INFORMATION
  Report Type: Spontaneous
  Country: US (occurrence: US)
  Receive Date: 20180724
  Receipt Date: 20180724
  Transmission Date: 20181010
  Serious: No
  Sender: FDA-Public Use
  Company Number: US-MYLANLABS-2018M1052930

PATIENT
  Age: 4 Year
  Sex: Female

DRUGS (2)
  1. FLONASE                            /00908302/ [Concomitant]
     Active Substance: MOMETASONE FUROATE
     Indication: HYPERSENSITIVITY
     Dosage: UNK
  2. DYMISTA [Suspect]
     Active Substance: AZELASTINE HYDROCHLORIDE\FLUTICASONE PROPIONATE
     Indication: HYPERSENSITIVITY
     Dosage: 1 DF, BID (1 SPRAY TWICE A DAY)
     Route: 045
     Dates: start: 201806

REACTIONS (3)
  - Product quality issue [Unknown]
  - No adverse event [Unknown]
  - Drug administered to patient of inappropriate age [Unknown]

NARRATIVE: CASE EVENT DATE: 201806
